FAERS Safety Report 6946631-6 (Version None)
Quarter: 2010Q3

REPORT INFORMATION
  Report Type: 
  Country: None (occurrence: None)
  Receive Date: 20100825
  Receipt Date: 20100810
  Transmission Date: 20110219
  Serious: Yes (Other)
  Sender: FDA-Public Use
  Company Number: 2010MA001735

PATIENT
  Age: 44 Year
  Sex: Male

DRUGS (7)
  1. DIAZEPAM [Suspect]
     Dosage: 4.5 MG;	;PO
     Route: 048
  2. VALPROIC ACID [Suspect]
     Dosage: 200 MG; QD; PO
     Route: 048
  3. AMISULPRIDE (AMISULPRIDE) [Suspect]
     Dosage: 1600 MG; QD; PO
     Route: 048
  4. CLOZARIL [Suspect]
     Indication: SCHIZOPHRENIA
     Dosage: 700 MG; QD; PO
     Route: 048
     Dates: start: 20060220
  5. HYOSCINE [Concomitant]
  6. VOLTAREN [Concomitant]
  7. SENNA [Concomitant]

REACTIONS (3)
  - EOSINOPHILIA [None]
  - NEUTROPENIA [None]
  - WHITE BLOOD CELL COUNT INCREASED [None]
